FAERS Safety Report 13485379 (Version 1)
Quarter: 2017Q2

REPORT INFORMATION
  Report Type: Spontaneous
  Country: US (occurrence: US)
  Receive Date: 20170426
  Receipt Date: 20170426
  Transmission Date: 20170830
  Serious: No
  Sender: FDA-Public Use
  Company Number: US-BRISTOL-MYERS SQUIBB COMPANY-BMS-2017-033490

PATIENT
  Sex: Female
  Weight: 68 kg

DRUGS (1)
  1. ORENCIA [Suspect]
     Active Substance: ABATACEPT
     Indication: RHEUMATOID ARTHRITIS
     Dosage: UNK
     Route: 058
     Dates: start: 201701

REACTIONS (5)
  - Injection site bruising [Unknown]
  - Pain [Unknown]
  - Drug ineffective [Unknown]
  - Injection site swelling [Unknown]
  - Drug dose omission [Unknown]
